FAERS Safety Report 5336285-7 (Version None)
Quarter: 2007Q2

REPORT INFORMATION
  Report Type: 
  Country: None (occurrence: None)
  Receive Date: 20070315
  Receipt Date: 20061120
  Transmission Date: 20071010
  Serious: No
  Sender: FDA-Public Use
  Company Number: BDI-008884

PATIENT
  Age: 50 Year
  Sex: Female

DRUGS (2)
  1. MULTIHANCE [Suspect]
     Indication: BREAST DISORDER
     Dosage: 20 ML ONCE IV
     Route: 042
     Dates: start: 20061104, end: 20061104
  2. MULTIHANCE [Suspect]
     Indication: NUCLEAR MAGNETIC RESONANCE IMAGING
     Dosage: 20 ML ONCE IV
     Route: 042
     Dates: start: 20061104, end: 20061104

REACTIONS (1)
  - NAUSEA [None]
